FAERS Safety Report 8371953 (Version 2)
Quarter: 2013Q1

REPORT INFORMATION
  Report Type: Spontaneous
  Country: PR (occurrence: PR)
  Receive Date: 20120129
  Receipt Date: 20130130
  Transmission Date: 20140127
  Serious: No
  Sender: FDA-Public Use
  Company Number: PR-ABBOTT-11P-131-0879598-00

PATIENT
  Sex: Female
  Weight: 69.92 kg

DRUGS (11)
  1. HUMIRA 40 MG/0.8 ML PEN [Suspect]
     Indication: RHEUMATOID ARTHRITIS
     Route: 058
     Dates: start: 201108, end: 201201
  2. METHOTREXATE [Concomitant]
     Indication: RHEUMATOID ARTHRITIS
     Route: 048
     Dates: start: 2009
  3. FOSAMAX [Concomitant]
     Indication: RHEUMATOID ARTHRITIS
     Route: 048
  4. FOLIC ACID [Concomitant]
     Indication: RHEUMATOID ARTHRITIS
     Route: 048
     Dates: start: 2009
  5. VITAMIN D 2000 [Concomitant]
     Indication: RHEUMATOID ARTHRITIS
     Route: 048
     Dates: start: 2009
  6. PREDNISONE [Concomitant]
     Indication: RHEUMATOID ARTHRITIS
     Route: 048
     Dates: start: 2009
  7. CATAFLAM [Concomitant]
     Indication: RHEUMATOID ARTHRITIS
     Route: 048
     Dates: start: 2008
  8. CALTRATE [Concomitant]
     Indication: RHEUMATOID ARTHRITIS
     Route: 048
  9. VERAPAMIL [Concomitant]
     Indication: HYPERTENSION
     Route: 048
  10. ZESTORETIC [Concomitant]
     Indication: HYPERTENSION
     Dosage: 20/25MGS
     Route: 048
     Dates: start: 2010
  11. SIMPONI [Concomitant]
     Indication: RHEUMATOID ARTHRITIS
     Route: 058
     Dates: start: 201201

REACTIONS (2)
  - Injection site reaction [Recovered/Resolved]
  - Injection site induration [Recovered/Resolved]
